FAERS Safety Report 8420158-7 (Version None)
Quarter: 2012Q2

REPORT INFORMATION
  Report Type: 
  Country: None (occurrence: None)
  Receive Date: 20120607
  Receipt Date: 20120525
  Transmission Date: 20120825
  Serious: Yes (Life-Threatening, Hospitalization)
  Sender: FDA-Public Use
  Company Number: AT-MYLANLABS-2012S1011118

PATIENT
  Age: 58 Year
  Sex: Female

DRUGS (4)
  1. AZATHIOPRINE [Suspect]
     Indication: SYSTEMIC LUPUS ERYTHEMATOSUS
     Dosage: 50 MG/DAY
     Route: 065
     Dates: start: 20100101, end: 20100901
  2. MYCOPHENOLIC ACID [Suspect]
     Indication: SYSTEMIC LUPUS ERYTHEMATOSUS
     Route: 065
     Dates: start: 20100901
  3. METHYLPREDNISOLONE [Suspect]
     Dosage: 60 MG/DAY
     Route: 065
     Dates: start: 20100101
  4. METHYLPREDNISOLONE [Suspect]
     Indication: SYSTEMIC LUPUS ERYTHEMATOSUS
     Dosage: 4 MG/DAY; THEN INCREASED TO 60 MG/DAY
     Route: 065
     Dates: start: 20100101

REACTIONS (8)
  - VOMITING [None]
  - NAUSEA [None]
  - CYTOMEGALOVIRUS INFECTION [None]
  - LARGE INTESTINAL ULCER [None]
  - PURULENCE [None]
  - LARGE INTESTINE PERFORATION [None]
  - OPPORTUNISTIC INFECTION [None]
  - PERITONITIS [None]
